FAERS Safety Report 8377824-1 (Version None)
Quarter: 2012Q2

REPORT INFORMATION
  Report Type: 
  Country: None (occurrence: None)
  Receive Date: 20120522
  Receipt Date: 20120514
  Transmission Date: 20120825
  Serious: Yes (Hospitalization)
  Sender: FDA-Public Use
  Company Number: BR-B.I. PHARMACEUTICALS,INC./RIDGEFIELD-2012-BR-00501BR

PATIENT
  Sex: Female
  Weight: 62 kg

DRUGS (4)
  1. PRADAXA [Suspect]
     Indication: CEREBROVASCULAR ACCIDENT PROPHYLAXIS
     Dosage: 220 MG
     Route: 048
     Dates: start: 20120101, end: 20120401
  2. LOSARTANA [Concomitant]
     Indication: HYPERTENSION
  3. CARVEDILOL [Concomitant]
     Indication: CARDIOMEGALY
  4. FUROSEMIDE [Concomitant]
     Indication: DIURETIC THERAPY

REACTIONS (5)
  - RENAL IMPAIRMENT [None]
  - OEDEMA PERIPHERAL [None]
  - DIZZINESS [None]
  - ABDOMINAL PAIN UPPER [None]
  - ABDOMINAL DISTENSION [None]
